FAERS Safety Report 12073502 (Version 1)
Quarter: 2016Q1

REPORT INFORMATION
  Report Type: Report from Study
  Country: US (occurrence: US)
  Receive Date: 20160212
  Receipt Date: 20160212
  Transmission Date: 20160526
  Serious: Yes (Hospitalization, Other)
  Sender: FDA-Public Use
  Company Number: US-BAYER-2014-148037

PATIENT
  Age: 59 Year
  Sex: Female
  Weight: 104.31 kg

DRUGS (10)
  1. ADEMPAS [Suspect]
     Active Substance: RIOCIGUAT
     Indication: PULMONARY ARTERIAL HYPERTENSION
     Dosage: 2.5 MG, TID SHIPPED: 04-JUN-2015
     Route: 048
  2. LETAIRIS [Concomitant]
     Active Substance: AMBRISENTAN
  3. ADEMPAS [Suspect]
     Active Substance: RIOCIGUAT
     Indication: PULMONARY ARTERIAL HYPERTENSION
     Dosage: 1.5 MG, TID
     Route: 048
  4. ADEMPAS [Suspect]
     Active Substance: RIOCIGUAT
     Indication: PULMONARY ARTERIAL HYPERTENSION
     Dosage: 2 MG, TID
     Route: 048
     Dates: start: 20141204
  5. XARELTO [Suspect]
     Active Substance: RIVAROXABAN
     Dosage: UNK
     Dates: end: 201511
  6. ADEMPAS [Suspect]
     Active Substance: RIOCIGUAT
     Indication: PULMONARY ARTERIAL HYPERTENSION
     Dosage: UNK
     Dates: start: 20140923
  7. LASIX [Suspect]
     Active Substance: FUROSEMIDE
     Dosage: BID
  8. LASIX [Suspect]
     Active Substance: FUROSEMIDE
     Dosage: 40 MG, QAM
  9. ADEMPAS [Suspect]
     Active Substance: RIOCIGUAT
     Indication: PULMONARY ARTERIAL HYPERTENSION
     Dosage: 0.5 MG, TID
     Route: 048
  10. ADEMPAS [Suspect]
     Active Substance: RIOCIGUAT
     Indication: PULMONARY ARTERIAL HYPERTENSION
     Dosage: 2.5 MG, TID SHIPPED: 21-SEP-2015
     Route: 048

REACTIONS (25)
  - Rales [Unknown]
  - Blood count abnormal [Unknown]
  - Oxygen saturation decreased [Unknown]
  - Paranasal sinus hypersecretion [None]
  - Cough [Unknown]
  - Anaemia [Recovering/Resolving]
  - Sinusitis [Recovered/Resolved]
  - Chest pain [Unknown]
  - Hemianaesthesia [Unknown]
  - Treatment noncompliance [None]
  - Dyspnoea [Unknown]
  - Haemorrhoids [None]
  - Dyspnoea exertional [None]
  - Tinnitus [Not Recovered/Not Resolved]
  - Weight increased [Unknown]
  - Oedema [Unknown]
  - Fatigue [Unknown]
  - Swelling [Unknown]
  - Orthopnoea [None]
  - Haemorrhoids [Unknown]
  - Haemorrhoidal haemorrhage [None]
  - Peripheral swelling [None]
  - Vision blurred [Recovered/Resolved]
  - Rectal haemorrhage [None]
  - Diplopia [Recovered/Resolved]

NARRATIVE: CASE EVENT DATE: 20150621
